FAERS Safety Report 6445530-6 (Version None)
Quarter: 2009Q4

REPORT INFORMATION
  Report Type: 
  Country: None (occurrence: None)
  Receive Date: 20091118
  Receipt Date: 20091117
  Transmission Date: 20100525
  Serious: Yes (Death, Life-Threatening, Hospitalization)
  Sender: FDA-Public Use
  Company Number: FR-B.I. PHARMACEUTICALS,INC./RIDGEFIELD-2004-FF-00335FF

PATIENT
  Sex: Male
  Weight: 75 kg

DRUGS (4)
  1. VIRAMUNE [Suspect]
     Indication: HIV INFECTION
     Dosage: 200 MG
     Route: 048
     Dates: start: 20040404, end: 20040418
  2. VIRAMUNE [Suspect]
     Dosage: 400 MG
     Route: 048
     Dates: start: 20040419, end: 20040501
  3. VIDEX [Concomitant]
     Indication: HIV INFECTION
     Dosage: 400 MG
     Route: 048
     Dates: start: 20030515, end: 20040501
  4. EPIVIR [Concomitant]
     Indication: HIV INFECTION
     Dosage: 300 MG
     Route: 048
     Dates: start: 20030515, end: 20040501

REACTIONS (1)
  - TOXIC EPIDERMAL NECROLYSIS [None]
